FAERS Safety Report 17924694 (Version 1)
Quarter: 2020Q2

REPORT INFORMATION
  Report Type: Other
  Country: US (occurrence: US)
  Receive Date: 20200622
  Receipt Date: 20200622
  Transmission Date: 20200714
  Serious: No
  Sender: FDA-Public Use
  Company Number: US-ACORDA-ACO_165161_2020

PATIENT
  Sex: Male

DRUGS (1)
  1. INBRIJA [Suspect]
     Active Substance: LEVODOPA
     Indication: PARKINSON^S DISEASE
     Dosage: 2 CAPS, PRN (NOT TO EXCEED 5 DOSES)

REACTIONS (5)
  - Balance disorder [Unknown]
  - Condition aggravated [Unknown]
  - Parkinson^s disease [Unknown]
  - Therapy cessation [Unknown]
  - Malaise [Unknown]
